FAERS Safety Report 20084301 (Version 5)
Quarter: 2021Q4

REPORT INFORMATION
  Report Type: Spontaneous
  Country: PT (occurrence: PT)
  Receive Date: 20211118
  Receipt Date: 20211228
  Transmission Date: 20220303
  Serious: Yes (Life-Threatening, Hospitalization, Disabling, Other)
  Sender: FDA-Public Use
  Company Number: PT-AUROBINDO-AUR-APL-2021-045643

PATIENT
  Age: 78 Year
  Sex: Female

DRUGS (4)
  1. ACITRETIN [Suspect]
     Active Substance: ACITRETIN
     Indication: Psoriasis
     Dosage: UNK
     Route: 065
  2. HYDROCHLOROTHIAZIDE [Suspect]
     Active Substance: HYDROCHLOROTHIAZIDE
     Indication: Hypertension
     Dosage: UNK
     Route: 065
  3. LISINOPRIL [Suspect]
     Active Substance: LISINOPRIL
     Indication: Hypertension
     Dosage: UNK
     Route: 065
  4. LISINOPRIL AND HYDROCHLOROTHIAZIDE [Suspect]
     Active Substance: HYDROCHLOROTHIAZIDE\LISINOPRIL
     Indication: Hypertension
     Dosage: UNK
     Route: 065

REACTIONS (15)
  - Psoriasis [Recovering/Resolving]
  - Retroperitoneal abscess [Recovering/Resolving]
  - Distributive shock [Recovering/Resolving]
  - Intestinal fistula [Recovering/Resolving]
  - Gastrointestinal necrosis [Recovering/Resolving]
  - Multiple organ dysfunction syndrome [Recovering/Resolving]
  - Erythrodermic psoriasis [Recovering/Resolving]
  - Condition aggravated [Recovering/Resolving]
  - Hypothermia [Unknown]
  - Skin necrosis [Unknown]
  - Mucosal inflammation [Unknown]
  - Poor peripheral circulation [Unknown]
  - Dry eye [Unknown]
  - Hypotension [Unknown]
  - Erythema [Recovering/Resolving]
